FAERS Safety Report 9971894 (Version 1)
Quarter: 2014Q1

REPORT INFORMATION
  Report Type: Report from Study
  Country: US (occurrence: US)
  Receive Date: 20140306
  Receipt Date: 20140306
  Transmission Date: 20141002
  Serious: Yes (Hospitalization)
  Sender: FDA-Public Use
  Company Number: US-ABBVIE-13P-163-1148366-00

PATIENT
  Age: 51 Year
  Sex: Male

DRUGS (14)
  1. HUMIRA [Suspect]
     Indication: RHEUMATOID ARTHRITIS
     Dates: start: 20130805
  2. PREDNISONE [Suspect]
     Indication: ARTHRITIS
     Dates: start: 201301
  3. METHOTREXATE [Concomitant]
     Indication: ARTHRITIS
     Dosage: 5-6 TABS
     Route: 048
  4. VITAMIN C [Concomitant]
     Indication: PRODUCT USED FOR UNKNOWN INDICATION
     Dosage: 500MG DAILY
  5. ASA [Concomitant]
     Indication: CARDIAC DISORDER
  6. FLAXSEED OIL [Concomitant]
     Indication: CARDIAC DISORDER
     Dosage: 1000MG DAILY
  7. FOLIC ACID [Concomitant]
     Indication: VITAMIN SUPPLEMENTATION
     Dosage: 1MG DAILY
  8. LISINOPRIL [Concomitant]
     Indication: HYPERTENSION
     Dosage: 5MG DAILY
  9. METOPROLOL [Concomitant]
     Indication: HYPERTENSION
  10. NITROGLYCERIN [Concomitant]
     Indication: CHEST PAIN
  11. OMEGA 3 FISH OIL [Concomitant]
     Indication: SUPPLEMENTATION THERAPY
     Dosage: 1000MG DAILY
  12. SIMVASTATIN [Concomitant]
     Indication: BLOOD CHOLESTEROL INCREASED
     Dosage: DAILY
  13. NEURONTIN [Concomitant]
     Indication: PRODUCT USED FOR UNKNOWN INDICATION
  14. RANEXA [Concomitant]
     Indication: PRODUCT USED FOR UNKNOWN INDICATION
     Dosage: PILL

REACTIONS (11)
  - Chest pain [Not Recovered/Not Resolved]
  - Oedema peripheral [Not Recovered/Not Resolved]
  - Joint swelling [Not Recovered/Not Resolved]
  - Arthralgia [Not Recovered/Not Resolved]
  - Back pain [Not Recovered/Not Resolved]
  - Sciatica [Not Recovered/Not Resolved]
  - Weight increased [Not Recovered/Not Resolved]
  - Neck pain [Not Recovered/Not Resolved]
  - Musculoskeletal pain [Not Recovered/Not Resolved]
  - Pain in extremity [Not Recovered/Not Resolved]
  - Hypoaesthesia [Not Recovered/Not Resolved]
